FAERS Safety Report 4983603-5 (Version None)
Quarter: 2006Q2

REPORT INFORMATION
  Report Type: 
  Country: None (occurrence: None)
  Receive Date: 20060425
  Receipt Date: 20060425
  Transmission Date: 20061013
  Serious: Yes (Other)
  Sender: FDA-Public Use
  Company Number: None

PATIENT
  Age: 83 Year
  Sex: Female
  Weight: 82.6 kg

DRUGS (5)
  1. GATIFLOXACIN [Suspect]
  2. AZITHROMYCIN [Concomitant]
  3. ALBUTEROL 90/IPRATROP INH [Concomitant]
  4. MULTI-VITAMIN [Concomitant]
  5. HCTZ 12.5/LISINOPRIL [Concomitant]

REACTIONS (1)
  - DIZZINESS [None]
